FAERS Safety Report 23592609 (Version 1)
Quarter: 2024Q1

REPORT INFORMATION
  Report Type: Spontaneous
  Country: US (occurrence: None)
  Receive Date: 20240303
  Receipt Date: 20240303
  Transmission Date: 20240410
  Serious: Yes (Life-Threatening, Hospitalization)
  Sender: FDA-Public Use
  Company Number: None

PATIENT
  Age: 38 Year
  Sex: Female
  Weight: 63 kg

DRUGS (1)
  1. TIANEPTINE [Suspect]
     Active Substance: TIANEPTINE
     Indication: Asthenia

REACTIONS (4)
  - Dyskinesia [None]
  - Speech disorder [None]
  - Sinus tachycardia [None]
  - Electrocardiogram QT prolonged [None]

NARRATIVE: CASE EVENT DATE: 20231024
